FAERS Safety Report 9059847 (Version 3)
Quarter: 2013Q1

REPORT INFORMATION
  Report Type: Report from Study
  Country: CA (occurrence: CA)
  Receive Date: 20130212
  Receipt Date: 20130321
  Transmission Date: 20140127
  Serious: Yes (Other)
  Sender: FDA-Public Use
  Company Number: CA-JNJFOC-20130200483

PATIENT
  Age: 62 None
  Sex: Female
  Weight: 51.2 kg

DRUGS (11)
  1. REMICADE [Suspect]
     Indication: PSORIASIS
     Route: 042
     Dates: start: 20120522
  2. REMICADE [Suspect]
     Indication: PSORIASIS
     Route: 042
     Dates: start: 20130130, end: 20130130
  3. REMICADE [Suspect]
     Indication: RHEUMATOID ARTHRITIS
     Route: 042
     Dates: start: 20120522
  4. REMICADE [Suspect]
     Indication: RHEUMATOID ARTHRITIS
     Route: 042
     Dates: start: 20130130, end: 20130130
  5. TYLENOL 3 [Concomitant]
     Route: 065
  6. ATIVAN [Concomitant]
     Route: 065
  7. ACTONEL [Concomitant]
     Route: 065
  8. VENTOLIN [Concomitant]
     Route: 065
  9. SYMBICORT [Concomitant]
     Route: 065
  10. RANITIDINE [Concomitant]
     Route: 065
  11. METHOTREXATE [Concomitant]
     Route: 065

REACTIONS (6)
  - Dyspnoea [Recovered/Resolved]
  - Infusion related reaction [Recovered/Resolved]
  - Hypoaesthesia [Recovered/Resolved]
  - Tremor [Recovered/Resolved]
  - Anxiety [Recovered/Resolved]
  - Influenza [Unknown]
